FAERS Safety Report 6211617-6 (Version None)
Quarter: 2009Q2

REPORT INFORMATION
  Report Type: 
  Country: None (occurrence: None)
  Receive Date: 20090602
  Receipt Date: 20090529
  Transmission Date: 20091009
  Serious: Yes (Death, Other)
  Sender: FDA-Public Use
  Company Number: US-JNJFOC-20090600336

PATIENT
  Age: 18 Year
  Sex: Female

DRUGS (7)
  1. HALOPERIDOL [Suspect]
     Indication: AGITATION
     Route: 065
  2. MEPERIDINE HCL [Suspect]
     Indication: AGITATION
     Route: 030
  3. PHENELZINE [Concomitant]
     Indication: STRESS
     Route: 065
  4. IMIPRAMINE [Concomitant]
     Indication: STRESS
     Route: 065
  5. FLURAZEPAM [Concomitant]
     Indication: STRESS
     Route: 065
  6. DIAZEPAM [Concomitant]
     Indication: STRESS
     Route: 065
  7. ACETAMINOPHEN [Concomitant]
     Route: 048

REACTIONS (4)
  - AGITATION [None]
  - BRONCHOPNEUMONIA [None]
  - CARDIO-RESPIRATORY ARREST [None]
  - HYPERPYREXIA [None]
